FAERS Safety Report 5576969-9 (Version None)
Quarter: 2007Q4

REPORT INFORMATION
  Report Type: 
  Country: None (occurrence: None)
  Receive Date: 20071228
  Receipt Date: 20071225
  Transmission Date: 20080405
  Serious: Yes (Other)
  Sender: FDA-Public Use
  Company Number: JP-AVENTIS-200713401JP

PATIENT
  Age: 22 Year

DRUGS (4)
  1. LANTUS [Suspect]
     Dosage: DOSE: 20 UNITS
     Route: 058
     Dates: end: 20071212
  2. OPTICLIK (INSULIN INJECTION PEN) [Suspect]
  3. HUMALOG [Concomitant]
  4. HUMALOG [Concomitant]
     Dosage: DOSE: 20 UNITS

REACTIONS (1)
  - KETOACIDOSIS [None]
